FAERS Safety Report 21739713 (Version 1)
Quarter: 2022Q4

REPORT INFORMATION
  Report Type: Spontaneous
  Country: US (occurrence: US)
  Receive Date: 20221216
  Receipt Date: 20221216
  Transmission Date: 20230112
  Serious: Yes (Hospitalization)
  Sender: FDA-Public Use
  Company Number: US-AMGEN-USASP2022203278

PATIENT
  Age: 68 Year
  Sex: Female

DRUGS (1)
  1. REPATHA [Suspect]
     Active Substance: EVOLOCUMAB
     Indication: Hyperlipidaemia
     Dosage: 420 MILLIGRAM, QMO
     Route: 058
     Dates: start: 202103

REACTIONS (11)
  - Pain in extremity [Unknown]
  - Myalgia [Not Recovered/Not Resolved]
  - Abdominal pain upper [Unknown]
  - Dyspnoea [Unknown]
  - Fluid retention [Unknown]
  - Muscle spasms [Unknown]
  - Arthralgia [Unknown]
  - Injection site pain [Unknown]
  - Device difficult to use [Unknown]
  - Product storage error [Unknown]
  - Drug dose omission by device [Unknown]

NARRATIVE: CASE EVENT DATE: 20210101
